FAERS Safety Report 16835827 (Version 1)
Quarter: 2019Q3

REPORT INFORMATION
  Report Type: Spontaneous
  Country: US (occurrence: US)
  Receive Date: 20190920
  Receipt Date: 20190920
  Transmission Date: 20191005
  Serious: Yes (Other)
  Sender: FDA-Public Use
  Company Number: US-GLAXOSMITHKLINE-US2019167142

PATIENT
  Age: 64 Year
  Sex: Female

DRUGS (1)
  1. NUCALA [Suspect]
     Active Substance: MEPOLIZUMAB
     Indication: PRODUCT USED FOR UNKNOWN INDICATION
     Dosage: UNK
     Route: 058
     Dates: start: 20190619

REACTIONS (6)
  - Cough [Unknown]
  - Headache [Recovered/Resolved]
  - Hangover [Unknown]
  - Pruritus [Unknown]
  - Pulmonary fibrosis [Unknown]
  - Costochondritis [Unknown]

NARRATIVE: CASE EVENT DATE: 2019
